FAERS Safety Report 20735765 (Version 2)
Quarter: 2022Q2

REPORT INFORMATION
  Report Type: Report from Study
  Country: IT (occurrence: IT)
  Receive Date: 20220421
  Receipt Date: 20220422
  Transmission Date: 20220720
  Serious: Yes (Other)
  Sender: FDA-Public Use
  Company Number: IT-ABBVIE-22K-083-4364890-00

PATIENT
  Age: 76 Year
  Sex: Male

DRUGS (2)
  1. CARBIDOPA\LEVODOPA [Suspect]
     Active Substance: CARBIDOPA\LEVODOPA
     Indication: Parkinson^s disease
     Dosage: PUMP SETTING MD: 7.2+3; CR: 2 (14H); ED: 2
     Route: 050
     Dates: start: 20220329
  2. CARBIDOPA\LEVODOPA [Suspect]
     Active Substance: CARBIDOPA\LEVODOPA

REACTIONS (4)
  - Gastric haemorrhage [Unknown]
  - Effusion [Unknown]
  - Abdominal wall haematoma [Unknown]
  - Gastric fistula [Unknown]

NARRATIVE: CASE EVENT DATE: 20220101
